FAERS Safety Report 4451476-5 (Version None)
Quarter: 2004Q3

REPORT INFORMATION
  Report Type: 
  Country: None (occurrence: None)
  Receive Date: 20040916
  Receipt Date: 20040914
  Transmission Date: 20050211
  Serious: Yes (Life-Threatening)
  Sender: FDA-Public Use
  Company Number: US-BRISTOL-MYERS SQUIBB COMPANY-12702718

PATIENT
  Age: 29 Year
  Sex: Male
  Weight: 75 kg

DRUGS (4)
  1. STAVUDINE XR [Suspect]
     Route: 048
     Dates: start: 20040809
  2. EMTRICITABINE [Suspect]
     Route: 048
     Dates: start: 20040809
  3. KALETRA [Suspect]
     Dosage: 133.3 MG/33.3 MG
     Route: 048
     Dates: start: 20040809
  4. MULTI-VITAMINS [Concomitant]

REACTIONS (1)
  - HYPERTRIGLYCERIDAEMIA [None]
